FAERS Safety Report 5856121-X (Version None)
Quarter: 2008Q3

REPORT INFORMATION
  Report Type: 
  Country: None (occurrence: None)
  Receive Date: 20080821
  Receipt Date: 20080821
  Transmission Date: 20090109
  Serious: Yes (Hospitalization)
  Sender: FDA-Public Use
  Company Number: None

PATIENT
  Age: 82 Year
  Sex: Male

DRUGS (2)
  1. WARFARIN SODIUM [Suspect]
     Indication: ATRIAL FIBRILLATION
     Dosage: 5 MG  HS PO
     Route: 048
     Dates: start: 20010601
  2. AMIODARONE HCL [Suspect]
     Dosage: 200 MG EVERY DAY PO
     Route: 048
     Dates: start: 20010312

REACTIONS (3)
  - HYPOPHAGIA [None]
  - INTERNATIONAL NORMALISED RATIO INCREASED [None]
  - MALNUTRITION [None]
